FAERS Safety Report 9834416 (Version 2)
Quarter: 2014Q2

REPORT INFORMATION
  Report Type: Report from Study
  Country: KR (occurrence: KR)
  Receive Date: 20140122
  Receipt Date: 20140403
  Transmission Date: 20141212
  Serious: Yes (Hospitalization)
  Sender: FDA-Public Use
  Company Number: KR-ABBVIE-14P-090-1190170-00

PATIENT
  Age: 29 Year
  Sex: Male
  Weight: 45.5 kg

DRUGS (9)
  1. HUMIRA [Suspect]
     Indication: CROHN^S DISEASE
     Route: 058
     Dates: start: 20131228, end: 20140110
  2. HUMIRA [Suspect]
     Route: 058
     Dates: start: 20140110
  3. CEFPODOXIME PROXETIL [Concomitant]
     Indication: CROHN^S DISEASE
     Route: 048
     Dates: start: 20131219, end: 20131229
  4. PREDNISOLONE [Concomitant]
     Indication: CROHN^S DISEASE
     Route: 048
     Dates: start: 20131219, end: 20131228
  5. PREDNISOLONE [Concomitant]
     Route: 048
     Dates: start: 20131228, end: 20131230
  6. PREDNISOLONE [Concomitant]
     Route: 048
     Dates: start: 20131228, end: 20131230
  7. PREDNISOLONE [Concomitant]
     Route: 048
     Dates: start: 20131230, end: 20140106
  8. PREDNISOLONE [Concomitant]
     Route: 048
     Dates: start: 20140106
  9. MESALAZINE [Concomitant]
     Indication: CROHN^S DISEASE
     Route: 048
     Dates: start: 20131030

REACTIONS (5)
  - Melaena [Recovered/Resolved]
  - Presyncope [Not Recovered/Not Resolved]
  - Conjunctival pallor [Recovering/Resolving]
  - Dizziness [Unknown]
  - Hyperhidrosis [Unknown]
